FAERS Safety Report 11809467 (Version 2)
Quarter: 2016Q1

REPORT INFORMATION
  Report Type: Report from Study
  Country: US (occurrence: US)
  Receive Date: 20151208
  Receipt Date: 20160125
  Transmission Date: 20160525
  Serious: Yes (Hospitalization, Other)
  Sender: FDA-Public Use
  Company Number: US-ROCHE-1559598

PATIENT
  Age: 75 Year
  Sex: Male

DRUGS (1)
  1. NUTROPIN AQ [Suspect]
     Active Substance: SOMATROPIN
     Indication: GROWTH HORMONE DEFICIENCY
     Route: 058

REACTIONS (5)
  - Road traffic accident [Unknown]
  - Deafness [Unknown]
  - Cholelithiasis [Unknown]
  - Drug dose omission [Unknown]
  - Haemarthrosis [Unknown]

NARRATIVE: CASE EVENT DATE: 2014
